FAERS Safety Report 13943232 (Version 1)
Quarter: 2017Q3

REPORT INFORMATION
  Report Type: Spontaneous
  Country: FR (occurrence: FR)
  Receive Date: 20170907
  Receipt Date: 20170907
  Transmission Date: 20171128
  Serious: Yes (Other)
  Sender: FDA-Public Use
  Company Number: FR-ELI_LILLY_AND_COMPANY-FR201708011257

PATIENT
  Age: 35 Year
  Sex: Female
  Weight: 63 kg

DRUGS (15)
  1. PROZAC [Suspect]
     Active Substance: FLUOXETINE HYDROCHLORIDE
     Dosage: 500 MG, DAILY
     Route: 065
     Dates: end: 20170624
  2. LARGACTIL                          /00011902/ [Suspect]
     Active Substance: CHLORPROMAZINE HYDROCHLORIDE
     Dosage: 500 MG, DAILY
     Route: 065
     Dates: end: 20170624
  3. ANAFRANIL [Suspect]
     Active Substance: CLOMIPRAMINE HYDROCHLORIDE
     Dosage: 500 MG, DAILY
     Route: 065
  4. PROZAC [Suspect]
     Active Substance: FLUOXETINE HYDROCHLORIDE
     Dosage: 40 MG, DAILY
     Route: 065
     Dates: start: 20160917, end: 20170403
  5. SERESTA [Suspect]
     Active Substance: OXAZEPAM
     Dosage: 500 MG, DAILY
     Route: 065
     Dates: end: 20170624
  6. PROZAC [Suspect]
     Active Substance: FLUOXETINE HYDROCHLORIDE
     Indication: DEPRESSION
     Dosage: UNK, UNKNOWN
     Route: 065
  7. LITHIUM. [Suspect]
     Active Substance: LITHIUM
     Indication: DEPRESSION
     Dosage: UNK, UNKNOWN
     Route: 065
  8. LITHIUM. [Suspect]
     Active Substance: LITHIUM
     Dosage: 500 MG, DAILY
     Route: 065
     Dates: start: 20170209, end: 20170216
  9. LITHIUM. [Suspect]
     Active Substance: LITHIUM
     Dosage: UNK, UNKNOWN
     Route: 065
     Dates: start: 20170317, end: 20170330
  10. LITHIUM. [Suspect]
     Active Substance: LITHIUM
     Dosage: 500 MG, DAILY
     Route: 065
     Dates: start: 20170331, end: 20170403
  11. LITHIUM. [Suspect]
     Active Substance: LITHIUM
     Dosage: 250 MG, DAILY
     Route: 065
     Dates: start: 20170404
  12. ANAFRANIL [Suspect]
     Active Substance: CLOMIPRAMINE HYDROCHLORIDE
     Indication: DEPRESSION
     Dosage: 75 MG, DAILY
     Route: 065
     Dates: start: 20170404, end: 20170624
  13. LARGACTIL                          /00011902/ [Suspect]
     Active Substance: CHLORPROMAZINE HYDROCHLORIDE
     Indication: DEPRESSION
     Dosage: 25 MG, DAILY
     Route: 065
     Dates: start: 20170127, end: 20170624
  14. SERESTA [Suspect]
     Active Substance: OXAZEPAM
     Indication: DEPRESSION
     Dosage: UNK UNK, DAILY
     Route: 065
     Dates: start: 20170331, end: 20170624
  15. PROZAC [Suspect]
     Active Substance: FLUOXETINE HYDROCHLORIDE
     Dosage: 20 MG, DAILY
     Route: 065
     Dates: start: 20170404, end: 20170624

REACTIONS (4)
  - Arrested labour [Unknown]
  - Maternal exposure during pregnancy [Recovered/Resolved]
  - Overdose [Unknown]
  - Gestational diabetes [Unknown]

NARRATIVE: CASE EVENT DATE: 20160917
